FAERS Safety Report 6237924-9 (Version None)
Quarter: 2009Q2

REPORT INFORMATION
  Report Type: 
  Country: None (occurrence: None)
  Receive Date: 20090621
  Receipt Date: 20090610
  Transmission Date: 20091009
  Serious: Yes (Other)
  Sender: FDA-Public Use
  Company Number: PHHY2009BR23157

PATIENT
  Sex: Female

DRUGS (2)
  1. EXELON [Suspect]
     Dosage: 1.5 MG, UNK
     Route: 048
  2. SUPRAN [Concomitant]

REACTIONS (3)
  - ASTHENIA [None]
  - GAIT DISTURBANCE [None]
  - HYPERSOMNIA [None]
